FAERS Safety Report 25039565 (Version 1)
Quarter: 2025Q1

REPORT INFORMATION
  Report Type: Spontaneous
  Country: US (occurrence: US)
  Receive Date: 20250305
  Receipt Date: 20250305
  Transmission Date: 20250408
  Serious: No
  Sender: JOHNSON AND JOHNSON
  Company Number: US-JNJFOC-20250172055

PATIENT
  Age: 63 Year
  Sex: Female

DRUGS (19)
  1. UPTRAVI [Suspect]
     Active Substance: SELEXIPAG
     Indication: Product used for unknown indication
     Route: 065
  2. TREPROSTINIL [Suspect]
     Active Substance: TREPROSTINIL
  3. VITAMINS [Concomitant]
     Active Substance: VITAMINS
  4. SILDENAFIL [Concomitant]
     Active Substance: SILDENAFIL
  5. HYDROCODONE-ACETAMINOPHENA-D, [Concomitant]
  6. POTASSIUM CHLORIDE [Concomitant]
     Active Substance: POTASSIUM CHLORIDE
  7. FLUOXETINE HYDROCHLORIDE [Concomitant]
     Active Substance: FLUOXETINE HYDROCHLORIDE
  8. IMODIUM A-D [Concomitant]
     Active Substance: LOPERAMIDE HYDROCHLORIDE
  9. SPIRONOLACTONE [Concomitant]
     Active Substance: SPIRONOLACTONE
  10. OPSUMIT [Concomitant]
     Active Substance: MACITENTAN
  11. BUMETANIDE [Concomitant]
     Active Substance: BUMETANIDE
  12. TREPROSTINIL [Concomitant]
     Active Substance: TREPROSTINIL
  13. MIRTAZAPINE [Concomitant]
     Active Substance: MIRTAZAPINE
  14. ONDANSETRON [Concomitant]
     Active Substance: ONDANSETRON
  15. LORATADINE [Concomitant]
     Active Substance: LORATADINE
  16. ALBUTEROL SULFATE [Concomitant]
     Active Substance: ALBUTEROL SULFATE
  17. GABAPENTIN [Concomitant]
     Active Substance: GABAPENTIN
  18. OXYGEN [Concomitant]
     Active Substance: OXYGEN
  19. QVAR REDIHALER [Concomitant]
     Active Substance: BECLOMETHASONE DIPROPIONATE

REACTIONS (5)
  - Headache [Unknown]
  - Nausea [Unknown]
  - Flushing [Unknown]
  - Hyperhidrosis [Unknown]
  - Vomiting [Unknown]
